FAERS Safety Report 13204843 (Version 1)
Quarter: 2017Q1

REPORT INFORMATION
  Report Type: Spontaneous
  Country: US (occurrence: US)
  Receive Date: 20170209
  Receipt Date: 20170209
  Transmission Date: 20170428
  Serious: No
  Sender: FDA-Public Use
  Company Number: US-GLAXOSMITHKLINE-US2017017686

PATIENT
  Age: 46 Year
  Sex: Female

DRUGS (1)
  1. ABREVA [Suspect]
     Active Substance: DOCOSANOL
     Indication: ORAL HERPES
     Dosage: UNK
     Dates: start: 20170205, end: 20170206

REACTIONS (6)
  - Application site vesicles [Unknown]
  - Application site erythema [Not Recovered/Not Resolved]
  - Oral discomfort [Recovering/Resolving]
  - Application site burn [Not Recovered/Not Resolved]
  - Lip swelling [Not Recovered/Not Resolved]
  - Application site pain [Recovering/Resolving]

NARRATIVE: CASE EVENT DATE: 20170205
